FAERS Safety Report 5064414-1 (Version None)
Quarter: 2006Q3

REPORT INFORMATION
  Report Type: 
  Country: None (occurrence: None)
  Receive Date: 20060728
  Receipt Date: 20060713
  Transmission Date: 20061208
  Serious: Yes (Death, Hospitalization)
  Sender: FDA-Public Use
  Company Number: US-BRISTOL-MYERS SQUIBB COMPANY-13441720

PATIENT
  Age: 42 Year
  Sex: Male
  Weight: 59 kg

DRUGS (10)
  1. ERBITUX [Suspect]
     Indication: COLON CANCER METASTATIC
     Route: 042
     Dates: start: 20060317, end: 20060317
  2. BENADRYL [Concomitant]
     Indication: PREMEDICATION
     Route: 042
  3. DECADRON [Concomitant]
     Indication: PREMEDICATION
     Route: 042
  4. ATROPINE [Concomitant]
  5. ALOXI [Concomitant]
     Indication: PREMEDICATION
  6. IRINOTECAN HCL [Concomitant]
     Route: 042
  7. FOLIC ACID [Concomitant]
  8. PHENERGAN HCL [Concomitant]
  9. KLONOPIN [Concomitant]
  10. AVINZA [Concomitant]

REACTIONS (2)
  - DEATH [None]
  - INFUSION RELATED REACTION [None]
